FAERS Safety Report 4526192-1 (Version None)
Quarter: 2004Q4

REPORT INFORMATION
  Report Type: 
  Country: None (occurrence: None)
  Receive Date: 20041207
  Receipt Date: 20041203
  Transmission Date: 20050328
  Serious: Yes (Hospitalization)
  Sender: FDA-Public Use
  Company Number: 25740

PATIENT
  Age: 37 Year
  Sex: Female

DRUGS (1)
  1. ALDARA [Suspect]
     Indication: CONDYLOMA ACUMINATUM
     Dosage: 1 SACHET, 3 TOTAL, TOPICAL
     Route: 061
     Dates: start: 20041115, end: 20041117

REACTIONS (8)
  - APPLICATION SITE OEDEMA [None]
  - APPLICATION SITE PAIN [None]
  - APPLICATION SITE ULCER [None]
  - HAEMOGLOBIN DECREASED [None]
  - INFLUENZA LIKE ILLNESS [None]
  - MALAISE [None]
  - PLATELET COUNT DECREASED [None]
  - PYREXIA [None]
